FAERS Safety Report 18953189 (Version 1)
Quarter: 2021Q1

REPORT INFORMATION
  Report Type: Spontaneous
  Country: US (occurrence: US)
  Receive Date: 20210226
  Receipt Date: 20210226
  Transmission Date: 20210420
  Serious: Yes (Hospitalization)
  Sender: FDA-Public Use
  Company Number: None

PATIENT
  Age: 16 Year
  Sex: Female

DRUGS (1)
  1. DEFERASIROX 360MG XIROMED [Suspect]
     Active Substance: DEFERASIROX
     Indication: SICKLE CELL DISEASE
     Dosage: TAKE 2 TABLETS BY MOUTH ALTERNATING 3 TABLETS EVERY OTHER DAY
     Route: 048
     Dates: start: 202007

REACTIONS (1)
  - Sickle cell anaemia with crisis [None]

NARRATIVE: CASE EVENT DATE: 20210210
